FAERS Safety Report 10634001 (Version 2)
Quarter: 2014Q4

REPORT INFORMATION
  Report Type: Spontaneous
  Country: IN (occurrence: None)
  Receive Date: 20141203
  Receipt Date: 20141211
  Transmission Date: 20150529
  Serious: Yes (Other)
  Sender: FDA-Public Use
  Company Number: FK201405635

PATIENT
  Age: 65 Year
  Sex: Female

DRUGS (7)
  1. OXALIPLATIN (MANUFACTURER UNKNOWN) (OXALIPLATIN) (OXALIPLATIN) [Suspect]
     Active Substance: OXALIPLATIN
     Indication: RECTAL ADENOCARCINOMA
     Dosage: 130 MG/M2, 1 IN 21 D
  2. CAPECITABINE (MANUFACTURER UNKNOWN) (CAPECITABINE) (CAPECITABINE) [Suspect]
     Active Substance: CAPECITABINE
     Indication: RECTAL ADENOCARCINOMA
  3. OXALIPLATIN (MANUFACTURER UNKNOWN) (OXALIPLATIN) (OXALIPLATIN) [Suspect]
     Active Substance: OXALIPLATIN
     Indication: METASTASES TO LUNG
     Dosage: 130 MG/M2, 1 IN 21 D
  4. UFTORAL [Suspect]
     Active Substance: TEGAFUR\URACIL
     Indication: METASTASES TO LUNG
  5. CAPECITABINE (MANUFACTURER UNKNOWN) (CAPECITABINE) (CAPECITABINE) [Suspect]
     Active Substance: CAPECITABINE
     Indication: METASTASES TO LUNG
  6. UFTORAL [Suspect]
     Active Substance: TEGAFUR\URACIL
     Indication: RECTAL ADENOCARCINOMA
  7. CALCIUM FOLINATE [Concomitant]
     Active Substance: LEUCOVORIN CALCIUM

REACTIONS (3)
  - Mucosal inflammation [None]
  - Diarrhoea [None]
  - Palmar-plantar erythrodysaesthesia syndrome [None]
